FAERS Safety Report 5103632-0 (Version None)
Quarter: 2006Q3

REPORT INFORMATION
  Report Type: 
  Country: None (occurrence: None)
  Receive Date: 20060908
  Receipt Date: 20060824
  Transmission Date: 20061208
  Serious: Yes (Other)
  Sender: FDA-Public Use
  Company Number: IND-AE-06-SAN-035

PATIENT
  Age: 70 Year
  Sex: Female

DRUGS (2)
  1. SANCTURA [Suspect]
     Indication: HYPERTONIC BLADDER
     Dosage: 20MG - BID - ORAL
     Route: 048
  2. TAMOXIFEN CITRATE [Concomitant]

REACTIONS (1)
  - HYPERSENSITIVITY [None]
